FAERS Safety Report 9291551 (Version 7)
Quarter: 2014Q2

REPORT INFORMATION
  Report Type: Spontaneous
  Country: FR (occurrence: FR)
  Receive Date: 20130515
  Receipt Date: 20140502
  Transmission Date: 20141212
  Serious: Yes (Hospitalization)
  Sender: FDA-Public Use
  Company Number: FR-CELGENEUS-056-21880-13050961

PATIENT
  Age: 64 Year
  Sex: Male
  Weight: 101 kg

DRUGS (11)
  1. REVLIMID [Suspect]
     Indication: PLASMA CELL MYELOMA
     Dosage: 25 MILLIGRAM
     Route: 048
     Dates: start: 20130327, end: 20130328
  2. REVLIMID [Suspect]
     Route: 048
     Dates: start: 20130327, end: 20130515
  3. DEXAMETHASONE [Suspect]
     Indication: PLASMA CELL MYELOMA
     Dosage: EVERY WEDNESDAY
     Route: 048
     Dates: start: 20130327
  4. DEXAMETHASONE [Suspect]
     Dosage: 40 MILLIGRAM
     Route: 048
     Dates: start: 20130327, end: 20130516
  5. DEXAMETHASONE [Suspect]
     Dosage: DOSE REDUCED
     Route: 048
  6. MLN9708/PLACEBO [Suspect]
     Indication: PLASMA CELL MYELOMA
     Dosage: 4 MILLIGRAM
     Route: 048
     Dates: start: 20130327, end: 20130509
  7. RETACRIT [Concomitant]
     Indication: ANAEMIA
     Route: 065
     Dates: start: 20130425
  8. SEROPLEX [Concomitant]
     Indication: DEPRESSION
     Route: 065
  9. NOVONORM [Concomitant]
     Indication: DIABETES MELLITUS
     Route: 065
     Dates: start: 20130410
  10. HUMALOG [Concomitant]
     Indication: DIABETES MELLITUS
     Route: 065
     Dates: start: 20130404
  11. METFORMIN [Concomitant]
     Indication: DIABETES MELLITUS INADEQUATE CONTROL
     Route: 065
     Dates: start: 20130410

REACTIONS (2)
  - Diabetes mellitus [Recovered/Resolved]
  - Diabetes mellitus [Recovered/Resolved]
